FAERS Safety Report 10174487 (Version 2)
Quarter: 2014Q2

REPORT INFORMATION
  Report Type: Spontaneous
  Country: US (occurrence: US)
  Receive Date: 20140515
  Receipt Date: 20140521
  Transmission Date: 20141212
  Serious: Yes (Other)
  Sender: FDA-Public Use
  Company Number: CHPA2014US006490

PATIENT
  Age: 81 Year
  Sex: Female

DRUGS (4)
  1. GAS-X EXTSTR CHEWABLE TABS CHERRY CREME [Suspect]
     Indication: FLATULENCE
     Dosage: 2 DF, QHS
     Route: 048
     Dates: start: 2012
  2. GAS-X EXTSTR CHEWABLE TABS CHERRY CREME [Suspect]
     Indication: DYSPEPSIA
  3. GAS-X EXTSTR CHEWABLE TABS CHERRY CREME [Suspect]
     Indication: OFF LABEL USE
  4. CARAFATE [Concomitant]
     Route: 065

REACTIONS (2)
  - Intestinal ulcer [Not Recovered/Not Resolved]
  - Therapeutic response changed [Unknown]
